FAERS Safety Report 25963247 (Version 1)
Quarter: 2025Q4

REPORT INFORMATION
  Report Type: Spontaneous
  Country: EU (occurrence: EU)
  Receive Date: 20251027
  Receipt Date: 20251027
  Transmission Date: 20260118
  Serious: Yes (Hospitalization, Disabling, Other)
  Sender: PFIZER
  Company Number: EU-SANDOZ-SDZ2025NL076731

PATIENT
  Age: 70 Year
  Sex: Female

DRUGS (1)
  1. RITUXIMAB [Suspect]
     Active Substance: RITUXIMAB
     Indication: Mantle cell lymphoma stage IV
     Dosage: 2-MONTHLY RITUXIMAB MAINTENANCE TREATMENT FOR A TOTAL  DURATION OF THREE YEARS

REACTIONS (3)
  - Deafness [Not Recovered/Not Resolved]
  - Myositis [Recovering/Resolving]
  - Enterovirus infection [Recovering/Resolving]
